FAERS Safety Report 8552292-5 (Version None)
Quarter: 2012Q3

REPORT INFORMATION
  Report Type: 
  Country: None (occurrence: None)
  Receive Date: 20120718
  Receipt Date: 20120709
  Transmission Date: 20120928
  Serious: Yes (Other)
  Sender: FDA-Public Use
  Company Number: AUR-APL-2012-02443

PATIENT
  Age: 21 Year
  Sex: Male
  Weight: 80 kg

DRUGS (2)
  1. CITALOPRAM HYDROBROMIDE [Suspect]
     Indication: ANXIETY
     Dosage: 10/20 MG, ORAL
     Route: 048
     Dates: start: 20110815, end: 20120314
  2. SERTRALINE HYDROCHLORIDE [Suspect]
     Indication: ANXIETY
     Dosage: 50/100 MG, ORAL
     Route: 048
     Dates: start: 20030408, end: 20080414

REACTIONS (2)
  - SEXUAL DYSFUNCTION [None]
  - ERECTILE DYSFUNCTION [None]
